FAERS Safety Report 8427215-X (Version None)
Quarter: 2012Q2

REPORT INFORMATION
  Report Type: 
  Country: None (occurrence: None)
  Receive Date: 20120611
  Receipt Date: 20120606
  Transmission Date: 20120825
  Serious: Yes (Hospitalization)
  Sender: FDA-Public Use
  Company Number: US-GLAXOSMITHKLINE-A0874765A

PATIENT
  Age: 61 Year
  Sex: Female

DRUGS (1)
  1. AVANDIA [Suspect]
     Indication: DIABETES MELLITUS
     Dosage: 8MG UNKNOWN
     Route: 048
     Dates: start: 20000502, end: 20030202

REACTIONS (8)
  - CEREBROVASCULAR ACCIDENT [None]
  - CARDIAC FAILURE CONGESTIVE [None]
  - SUPRAVENTRICULAR TACHYCARDIA [None]
  - MYOCARDIAL INFARCTION [None]
  - ISCHAEMIC CARDIOMYOPATHY [None]
  - TRANSIENT ISCHAEMIC ATTACK [None]
  - RENAL FAILURE [None]
  - VENTRICULAR TACHYCARDIA [None]
